FAERS Safety Report 22263888 (Version 1)
Quarter: 2023Q2

REPORT INFORMATION
  Report Type: Spontaneous
  Country: US (occurrence: None)
  Receive Date: 20230426
  Receipt Date: 20230426
  Transmission Date: 20230722
  Serious: No
  Sender: FDA-Public Use
  Company Number: None

PATIENT
  Age: 62 Year
  Sex: Female

DRUGS (12)
  1. CAPECITABINE [Suspect]
     Active Substance: CAPECITABINE
     Indication: Gastric cancer
     Dosage: FREQUENCY : DAILY;?
     Route: 048
  2. CLARITIN [Concomitant]
  3. ELIQUIS [Concomitant]
  4. LEVOTHYROXINE [Concomitant]
  5. LORZEPAM [Concomitant]
  6. METOPROLOL TARTRATE [Concomitant]
  7. MIRALAX [Concomitant]
  8. MULTI-VITAMIN [Concomitant]
  9. NASONEX [Concomitant]
  10. NIVOLUMAB IV SOL [Concomitant]
  11. POTASSIUM CHLORIDE [Concomitant]
  12. TRAMADOL [Concomitant]

REACTIONS (5)
  - Illness [None]
  - Nausea [None]
  - Vomiting [None]
  - Palmar-plantar erythrodysaesthesia syndrome [None]
  - Chills [None]
